FAERS Safety Report 10432337 (Version 4)
Quarter: 2014Q4

REPORT INFORMATION
  Report Type: Spontaneous
  Country: US (occurrence: US)
  Receive Date: 20140905
  Receipt Date: 20141020
  Transmission Date: 20150528
  Serious: Yes (Hospitalization)
  Sender: FDA-Public Use
  Company Number: US-UNITED THERAPEUTICS-UNT-2014-006757

PATIENT
  Age: 75 Year
  Sex: Male
  Weight: 72.56 kg

DRUGS (2)
  1. TRACLEER [Concomitant]
     Active Substance: BOSENTAN\BOSENTAN MONOHYDRATE
     Indication: PRODUCT USED FOR UNKNOWN INDICATION
  2. REMODULIN [Suspect]
     Active Substance: TREPROSTINIL
     Indication: COR PULMONALE CHRONIC
     Dosage: 0.021 ?G/KG, CONTINUING
     Route: 058
     Dates: start: 20140625

REACTIONS (5)
  - Haemoglobin decreased [Recovered/Resolved]
  - Respiratory failure [Recovering/Resolving]
  - Haemoptysis [Recovered/Resolved]
  - Anaemia [Recovering/Resolving]
  - Pneumonia [Recovered/Resolved]

NARRATIVE: CASE EVENT DATE: 20140827
